FAERS Safety Report 16796894 (Version 1)
Quarter: 2019Q3

REPORT INFORMATION
  Report Type: Spontaneous
  Country: US (occurrence: US)
  Receive Date: 20190911
  Receipt Date: 20190911
  Transmission Date: 20191005
  Serious: Yes (Hospitalization, Other)
  Sender: FDA-Public Use
  Company Number: PHEH2019US037051

PATIENT
  Age: 5 Year
  Sex: Male

DRUGS (3)
  1. HYDROXYUREA. [Suspect]
     Active Substance: HYDROXYUREA
     Dosage: UNK
     Route: 065
     Dates: start: 201705, end: 201807
  2. HYDROXYUREA. [Suspect]
     Active Substance: HYDROXYUREA
     Indication: THALASSAEMIA BETA
     Dosage: UNK
     Route: 065
     Dates: start: 201505, end: 201602
  3. JADENU [Suspect]
     Active Substance: DEFERASIROX
     Indication: THALASSAEMIA SICKLE CELL
     Dosage: UNK
     Route: 065

REACTIONS (13)
  - Splenomegaly [Unknown]
  - Sickle cell anaemia with crisis [Unknown]
  - Dactylitis [Unknown]
  - Pneumonia [Unknown]
  - Eye pain [Unknown]
  - Alloimmunisation [Unknown]
  - Acute chest syndrome [Unknown]
  - Enterovirus test positive [Unknown]
  - Hypersplenism [Unknown]
  - Human metapneumovirus test positive [Unknown]
  - Haemoglobin decreased [Unknown]
  - Pyrexia [Unknown]
  - Corneal abrasion [Recovered/Resolved]
